FAERS Safety Report 19370771 (Version 2)
Quarter: 2021Q2

REPORT INFORMATION
  Report Type: Spontaneous
  Country: US (occurrence: US)
  Receive Date: 20210603
  Receipt Date: 20210617
  Transmission Date: 20210717
  Serious: Yes (Life-Threatening, Hospitalization)
  Sender: FDA-Public Use
  Company Number: US-TEVA-2021-US-1917457

PATIENT
  Age: 65 Year
  Sex: Male

DRUGS (1)
  1. TREPROSTINIL. [Suspect]
     Active Substance: TREPROSTINIL
     Indication: PULMONARY ARTERIAL HYPERTENSION
     Dosage: THROUGH HICKMAN CATHETER
     Route: 042

REACTIONS (2)
  - Withdrawal hypertension [Recovered/Resolved]
  - Cardiogenic shock [Recovered/Resolved]
